FAERS Safety Report 4751522-5 (Version None)
Quarter: 2005Q3

REPORT INFORMATION
  Report Type: 
  Country: None (occurrence: None)
  Receive Date: 20050824
  Receipt Date: 20050804
  Transmission Date: 20060218
  Serious: Yes (Death, Disabling)
  Sender: FDA-Public Use
  Company Number: JP-MERCK-0508USA01589

PATIENT
  Age: 69 Year
  Sex: Female
  Weight: 50 kg

DRUGS (10)
  1. AREDIA [Suspect]
     Route: 042
     Dates: start: 20041122, end: 20041209
  2. VOLTAREN [Suspect]
     Route: 054
  3. PENTCILLIN [Suspect]
     Route: 051
     Dates: start: 20041115, end: 20041116
  4. PENTCILLIN [Suspect]
     Route: 051
     Dates: start: 20041201, end: 20041207
  5. TOBRACIN [Suspect]
     Route: 051
     Dates: start: 20041115, end: 20041116
  6. TOBRACIN [Suspect]
     Route: 051
     Dates: start: 20041201, end: 20041207
  7. GRAN [Suspect]
     Route: 051
     Dates: start: 20041116, end: 20041122
  8. IMMUNE GLOBULIN INTRAVENOUS (HUMAN) [Suspect]
     Route: 042
     Dates: start: 20041116, end: 20041118
  9. PRIMAXIN [Suspect]
     Route: 042
     Dates: start: 20041217, end: 20041221
  10. PRIMAXIN [Suspect]
     Route: 042
     Dates: start: 20041116, end: 20041122

REACTIONS (2)
  - CARDIAC FAILURE [None]
  - LEUKOENCEPHALOPATHY [None]
